FAERS Safety Report 13115723 (Version 3)
Quarter: 2017Q3

REPORT INFORMATION
  Report Type: Report from Study
  Country: AU (occurrence: AU)
  Receive Date: 20170114
  Receipt Date: 20170704
  Transmission Date: 20171127
  Serious: Yes (Hospitalization, Other)
  Sender: FDA-Public Use
  Company Number: PHHY2017AU004423

PATIENT
  Age: 72 Year
  Sex: Male

DRUGS (1)
  1. SANDOSTATIN LAR DEPOT [Suspect]
     Active Substance: OCTREOTIDE ACETATE
     Indication: ACROMEGALY
     Dosage: 30 MG, UNK
     Route: 030

REACTIONS (5)
  - Weight decreased [Unknown]
  - Cholelithiasis [Unknown]
  - Anaesthetic complication [Not Recovered/Not Resolved]
  - Asthenia [Unknown]
  - Cushing^s syndrome [Unknown]

NARRATIVE: CASE EVENT DATE: 201702
